FAERS Safety Report 25874290 (Version 1)
Quarter: 2025Q4

REPORT INFORMATION
  Report Type: Spontaneous
  Country: US (occurrence: US)
  Receive Date: 20251002
  Receipt Date: 20251002
  Transmission Date: 20260118
  Serious: Yes (Hospitalization)
  Sender: CALLIDITAS THERAPEUTICS AB
  Company Number: US-Calliditas-2025CAL02944

PATIENT
  Age: 76 Year
  Sex: Female

DRUGS (16)
  1. TARPEYO [Suspect]
     Active Substance: BUDESONIDE
     Indication: IgA nephropathy
     Dosage: TAKE 1 CAPSULE BY MOUTH DAILY AS DIRECTED ALTERNATING 2 CAPSULES EVERY OTHER DAY; CHANGED TO TWO ...
     Route: 048
     Dates: start: 20250112
  2. FARXIGA [Concomitant]
     Active Substance: DAPAGLIFLOZIN PROPANEDIOL
  3. OMEPRAZOLE [Concomitant]
     Active Substance: OMEPRAZOLE
  4. PROPRANOLOL [Concomitant]
     Active Substance: PROPRANOLOL HYDROCHLORIDE
  5. FLONASE [Concomitant]
     Active Substance: FLUTICASONE PROPIONATE
  6. MAGNESIUM OXIDE [Concomitant]
     Active Substance: MAGNESIUM OXIDE
  7. CRESTOR [Concomitant]
     Active Substance: ROSUVASTATIN CALCIUM
  8. OXYCODONE [Concomitant]
     Active Substance: OXYCODONE
  9. VITAMIN D NOS [Concomitant]
     Active Substance: CHOLECALCIFEROL\ERGOCALCIFEROL
  10. ESTRADIOL [Concomitant]
     Active Substance: ESTRADIOL
  11. DIAZEPAM [Concomitant]
     Active Substance: DIAZEPAM
  12. VALACYCLOVIR [Concomitant]
     Active Substance: VALACYCLOVIR HYDROCHLORIDE
  13. BUPROPION [Concomitant]
     Active Substance: BUPROPION
  14. FUROSEMIDE [Concomitant]
     Active Substance: FUROSEMIDE
  15. LINZESS [Concomitant]
     Active Substance: LINACLOTIDE
  16. FILSPARI [Concomitant]
     Active Substance: SPARSENTAN

REACTIONS (2)
  - Cerebrovascular accident [Recovered/Resolved]
  - Prescribed underdose [Unknown]
